FAERS Safety Report 5638706-9 (Version None)
Quarter: 2008Q1

REPORT INFORMATION
  Report Type: 
  Country: None (occurrence: None)
  Receive Date: 20080226
  Receipt Date: 20071204
  Transmission Date: 20080703
  Serious: No
  Sender: FDA-Public Use
  Company Number: A0697276A

PATIENT
  Sex: Male

DRUGS (2)
  1. IMITREX [Suspect]
     Indication: HEADACHE
  2. NO CONCURRENT MEDICATION [Concomitant]

REACTIONS (1)
  - MUSCULOSKELETAL STIFFNESS [None]
